FAERS Safety Report 13819756 (Version 1)
Quarter: 2017Q3

REPORT INFORMATION
  Report Type: Spontaneous
  Country: US (occurrence: US)
  Receive Date: 20170731
  Receipt Date: 20170731
  Transmission Date: 20171127
  Serious: Yes (Hospitalization)
  Sender: FDA-Public Use
  Company Number: None

PATIENT
  Age: 82 Year
  Sex: Male

DRUGS (1)
  1. SPIRONOLACTONE. [Suspect]
     Active Substance: SPIRONOLACTONE
     Route: 048
     Dates: start: 20170318, end: 20170410

REACTIONS (11)
  - Asthenia [None]
  - Laboratory test abnormal [None]
  - Cellulitis [None]
  - Leukocytosis [None]
  - Skin exfoliation [None]
  - Vomiting [None]
  - Rash [None]
  - Rash erythematous [None]
  - Oral mucosa erosion [None]
  - Colitis [None]
  - Urticaria [None]

NARRATIVE: CASE EVENT DATE: 20170410
